FAERS Safety Report 8942451 (Version 4)
Quarter: 2013Q1

REPORT INFORMATION
  Report Type: Spontaneous
  Country: JP (occurrence: None)
  Receive Date: 20121121
  Receipt Date: 20121227
  Transmission Date: 20140127
  Serious: Yes (Life-Threatening)
  Sender: FDA-Public Use
  Company Number: DSJ-2012-21068

PATIENT
  Age: 78 Year
  Sex: Female
  Weight: 31 kg

DRUGS (4)
  1. OLMETEC [Suspect]
     Indication: HYPERTENSION
     Route: 048
     Dates: start: 2007, end: 20090424
  2. NORVASC [Suspect]
     Indication: HYPERTENSION
     Route: 048
     Dates: start: 2007, end: 20090323
  3. NORVASC OD [Suspect]
     Indication: HYPERTENSION
     Route: 048
     Dates: start: 20090324, end: 20090422
  4. RINDERON (BETAMETHASONE ( (INJECTION) (BETAMETHASONE) [Concomitant]

REACTIONS (21)
  - Diarrhoea [None]
  - Malabsorption [None]
  - Weight decreased [None]
  - Decreased appetite [None]
  - Hypokalaemia [None]
  - Sepsis [None]
  - Pneumatosis intestinalis [None]
  - Klebsiella test positive [None]
  - Staphylococcus test positive [None]
  - Oedema [None]
  - Malnutrition [None]
  - Pyrexia [None]
  - Device related infection [None]
  - Anaemia [None]
  - Blood pressure increased [None]
  - Alkalosis [None]
  - Liddle^s syndrome [None]
  - Chondrocalcinosis pyrophosphate [None]
  - Spondylitis [None]
  - Malabsorption [None]
  - Hypoalbuminaemia [None]
